FAERS Safety Report 9921958 (Version 3)
Quarter: 2014Q2

REPORT INFORMATION
  Report Type: Spontaneous
  Country: US (occurrence: US)
  Receive Date: 20140225
  Receipt Date: 20140523
  Transmission Date: 20141212
  Serious: Yes (Hospitalization, Other)
  Sender: FDA-Public Use
  Company Number: US-BAYER-2014-029207

PATIENT
  Age: 32 Year
  Sex: Female
  Weight: 70.3 kg

DRUGS (1)
  1. MIRENA [Suspect]
     Indication: CONTRACEPTION
     Dosage: 20 MCG/24HR, CONT
     Route: 015
     Dates: start: 200707, end: 200901

REACTIONS (8)
  - Uterine perforation [None]
  - Genital haemorrhage [None]
  - Procedural pain [None]
  - Nausea [None]
  - Device issue [None]
  - Back pain [None]
  - Injury [None]
  - Emotional distress [None]
